FAERS Safety Report 6337478-2 (Version None)
Quarter: 2009Q3

REPORT INFORMATION
  Report Type: 
  Country: None (occurrence: None)
  Receive Date: 20090901
  Receipt Date: 20090901
  Transmission Date: 20100115
  Serious: Yes (Life-Threatening, Hospitalization)
  Sender: FDA-Public Use
  Company Number: None

PATIENT
  Age: 9 Year
  Sex: Male
  Weight: 30 kg

DRUGS (2)
  1. DEPAKOTE [Suspect]
     Indication: BIPOLAR DISORDER
     Dosage: 250MG BID PO  500MG  BID PO
     Route: 048
  2. DEPAKOTE [Suspect]
     Indication: BIPOLAR DISORDER
     Dosage: 250MG BID PO  500MG  BID PO
     Route: 048

REACTIONS (2)
  - ACUTE HEPATIC FAILURE [None]
  - LIVER TRANSPLANT [None]
